FAERS Safety Report 15638094 (Version 5)
Quarter: 2019Q1

REPORT INFORMATION
  Report Type: Spontaneous
  Country: US (occurrence: US)
  Receive Date: 20181120
  Receipt Date: 20190222
  Transmission Date: 20190417
  Serious: Yes (Other)
  Sender: FDA-Public Use
  Company Number: US-ALKERMES INC.-ALK-2018-006328

PATIENT
  Age: 37 Year
  Sex: Male
  Weight: 85.71 kg

DRUGS (8)
  1. ARISTADA [Suspect]
     Active Substance: ARIPIPRAZOLE LAUROXIL
     Indication: SCHIZOPHRENIA
     Dosage: 882 MG, QMO
     Route: 030
     Dates: start: 20180320, end: 20181119
  2. VISTARIL [Concomitant]
     Active Substance: HYDROXYZINE PAMOATE
     Indication: PRODUCT USED FOR UNKNOWN INDICATION
     Dosage: UNK
  3. PROPANOLOL [Concomitant]
     Active Substance: PROPRANOLOL HYDROCHLORIDE
     Indication: PRODUCT USED FOR UNKNOWN INDICATION
     Dosage: UNK
  4. ARISTADA [Suspect]
     Active Substance: ARIPIPRAZOLE LAUROXIL
     Dosage: UNK
     Route: 030
     Dates: start: 201806
  5. BENZTROPINE. [Concomitant]
     Active Substance: BENZTROPINE
     Indication: PRODUCT USED FOR UNKNOWN INDICATION
     Dosage: UNK
  6. ABILIFY [Concomitant]
     Active Substance: ARIPIPRAZOLE
     Indication: SCHIZOPHRENIA
  7. ARISTADA [Suspect]
     Active Substance: ARIPIPRAZOLE LAUROXIL
     Dosage: 882 MG, QMO
     Route: 030
     Dates: start: 20180924, end: 20181118
  8. OTHER THERAPEUTIC PRODUCTS [Concomitant]
     Active Substance: UNSPECIFIED INGREDIENT
     Indication: ANXIETY
     Dosage: UNK

REACTIONS (21)
  - Visual impairment [Recovered/Resolved]
  - Needle issue [Not Recovered/Not Resolved]
  - Injection site mass [Not Recovered/Not Resolved]
  - Vision blurred [Recovered/Resolved]
  - Weight decreased [Not Recovered/Not Resolved]
  - Aggression [Recovering/Resolving]
  - Incorrect route of product administration [Not Recovered/Not Resolved]
  - Injection site pain [Not Recovered/Not Resolved]
  - Feeling of despair [Recovering/Resolving]
  - Hallucinations, mixed [Not Recovered/Not Resolved]
  - Product physical consistency issue [Not Recovered/Not Resolved]
  - Mania [Recovering/Resolving]
  - Depression [Recovering/Resolving]
  - Decreased appetite [Recovering/Resolving]
  - Amnesia [Not Recovered/Not Resolved]
  - Personality change [Recovering/Resolving]
  - Muscle atrophy [Unknown]
  - Suicidal ideation [Recovering/Resolving]
  - Mood swings [Recovering/Resolving]
  - Tunnel vision [Recovered/Resolved]
  - Memory impairment [Unknown]

NARRATIVE: CASE EVENT DATE: 2018
